FAERS Safety Report 23074144 (Version 5)
Quarter: 2023Q4

REPORT INFORMATION
  Report Type: Report from Study
  Country: PL (occurrence: PL)
  Receive Date: 20231017
  Receipt Date: 20231205
  Transmission Date: 20240110
  Serious: Yes (Hospitalization)
  Sender: FDA-Public Use
  Company Number: PL-PFIZER INC-PV202300165235

PATIENT
  Age: 38 Year
  Sex: Female
  Weight: 72.3 kg

DRUGS (4)
  1. ABROCITINIB [Suspect]
     Active Substance: ABROCITINIB
     Indication: Dermatitis atopic
     Dosage: 100 MG, 1X/DAY
     Route: 048
     Dates: start: 20190225
  2. MOMETASONE FUROATE [Concomitant]
     Active Substance: MOMETASONE FUROATE
     Indication: Dermatitis atopic
     Dosage: UNK
     Dates: start: 20190617
  3. HYDROCORTISONUM [HYDROCORTISONE] [Concomitant]
     Indication: Dermatitis atopic
     Dosage: UNK
     Dates: start: 20190617
  4. MEDIDERM [TRIAMCINOLONE ACETONIDE] [Concomitant]
     Indication: Dermatitis atopic
     Dosage: EMOLLIENT
     Dates: start: 2018

REACTIONS (1)
  - Upper respiratory tract infection bacterial [Recovered/Resolved]

NARRATIVE: CASE EVENT DATE: 20230505
